FAERS Safety Report 26207546 (Version 1)
Quarter: 2025Q4

REPORT INFORMATION
  Report Type: Spontaneous
  Country: US (occurrence: None)
  Receive Date: 20251224
  Receipt Date: 20251224
  Transmission Date: 20260119
  Serious: Yes (Other)
  Sender: FDA-CTU
  Company Number: None

PATIENT
  Age: 40 Year
  Sex: Female
  Weight: 78.73 kg

DRUGS (1)
  1. IBRANCE [Suspect]
     Active Substance: PALBOCICLIB
     Indication: Breast cancer female
     Dosage: 100 MG 21D ON 7 OFF ORAL
     Route: 048
     Dates: start: 20250128

REACTIONS (3)
  - Drug ineffective [None]
  - Neutropenia [None]
  - Anaemia [None]

NARRATIVE: CASE EVENT DATE: 20251030
